FAERS Safety Report 8507367-3 (Version None)
Quarter: 2012Q3

REPORT INFORMATION
  Report Type: 
  Country: None (occurrence: None)
  Receive Date: 20120712
  Receipt Date: 20120627
  Transmission Date: 20120928
  Serious: Yes (Other)
  Sender: FDA-Public Use
  Company Number: CHPA2012US014685

PATIENT
  Age: 66 Year
  Sex: Female

DRUGS (2)
  1. BENEFIBER UNKNOWN [Suspect]
     Indication: PROPHYLAXIS AGAINST DIARRHOEA
     Dosage: UNK, UNK
     Route: 048
  2. BENEFIBER W/ WHEAT DEXTRIN [Suspect]
     Indication: PROPHYLAXIS AGAINST DIARRHOEA
     Dosage: 9-12 DF, QD
     Route: 048
     Dates: start: 20120101

REACTIONS (3)
  - EXPIRED DRUG ADMINISTERED [None]
  - PANCREATITIS [None]
  - MALAISE [None]
